FAERS Safety Report 5287414-5 (Version None)
Quarter: 2007Q1

REPORT INFORMATION
  Report Type: 
  Country: None (occurrence: None)
  Receive Date: 20070116
  Receipt Date: 20060926
  Transmission Date: 20070707
  Serious: No
  Sender: FDA-Public Use
  Company Number: 2006SP003432

PATIENT
  Age: 42 Year
  Sex: Male
  Weight: 90.7194 kg

DRUGS (8)
  1. LUNESTA [Suspect]
     Indication: INSOMNIA
     Dosage: 3MG;1X; ORAL
     Route: 048
     Dates: start: 20060922, end: 20060922
  2. LUNESTA [Suspect]
     Indication: INSOMNIA
     Dosage: 3MG;1X; ORAL
     Route: 048
     Dates: start: 20060924, end: 20060924
  3. MACRODANTIN [Concomitant]
  4. ATORVASTATIN CALCIUM [Concomitant]
  5. WELLBUTRIN [Concomitant]
  6. ANTIBIOTICS FOR TOPICAL USE [Concomitant]
  7. ANTIBIOTICS [Concomitant]
  8. MELATONIN [Concomitant]

REACTIONS (1)
  - DYSGEUSIA [None]
